FAERS Safety Report 4854377-3 (Version None)
Quarter: 2005Q4

REPORT INFORMATION
  Report Type: 
  Country: None (occurrence: None)
  Receive Date: 20051214
  Receipt Date: 20051214
  Transmission Date: 20060501
  Serious: Yes (Life-Threatening, Hospitalization, Disabling)
  Sender: FDA-Public Use
  Company Number: None

PATIENT
  Age: 44 Year
  Sex: Female
  Weight: 81.1 kg

DRUGS (7)
  1. INTERFERON BETA [Suspect]
     Indication: MULTIPLE SCLEROSIS
  2. ASPIRIN [Concomitant]
  3. WELLBUTRIN [Concomitant]
  4. PROVIGIL [Concomitant]
  5. PROTONIX [Concomitant]
  6. ALBUTEROL [Concomitant]
  7. ATROVENT [Concomitant]

REACTIONS (8)
  - CHEST PAIN [None]
  - CONTINUOUS POSITIVE AIRWAY PRESSURE [None]
  - DYSPNOEA EXERTIONAL [None]
  - EJECTION FRACTION DECREASED [None]
  - HYPERHIDROSIS [None]
  - INTERVERTEBRAL DISC DEGENERATION [None]
  - NAUSEA [None]
  - VENTRICULAR DYSFUNCTION [None]
